FAERS Safety Report 10372157 (Version 2)
Quarter: 2014Q3

REPORT INFORMATION
  Report Type: Report from Study
  Country: US (occurrence: US)
  Receive Date: 20140808
  Receipt Date: 20140820
  Transmission Date: 20150326
  Serious: Yes (Hospitalization)
  Sender: FDA-Public Use
  Company Number: US-OTSUKA-US-2014-11945

PATIENT
  Age: 37 Year
  Sex: Female

DRUGS (7)
  1. BLINDED OPC-14597 [Suspect]
     Active Substance: CILOSTAZOL
     Indication: BIPOLAR I DISORDER
     Dosage: UNK
     Route: 048
     Dates: start: 20140606, end: 20140715
  2. BLINDED OPC-14597 [Suspect]
     Active Substance: CILOSTAZOL
     Dosage: 400 MG MILLIGRAM(S), UNK
     Route: 030
     Dates: start: 20140716, end: 20140716
  3. NAPROXEN. [Concomitant]
     Active Substance: NAPROXEN
     Indication: MIGRAINE
     Dosage: 100 MG MILLIGRAM(S), QAM
     Route: 048
     Dates: start: 20140724
  4. NAPROXEN. [Concomitant]
     Active Substance: NAPROXEN
     Dosage: 500 MG MILLIGRAM(S), HS
     Route: 048
     Dates: start: 20140724
  5. IMITREX [Concomitant]
     Active Substance: SUMATRIPTAN\SUMATRIPTAN SUCCINATE
     Indication: MIGRAINE
     Dosage: 50 MG MILLIGRAM(S), QD PRN
     Route: 048
     Dates: start: 20140620
  6. ATIVAN [Concomitant]
     Active Substance: LORAZEPAM
     Indication: ANXIETY
     Dosage: 2 MG MILLIGRAM(S), QD PRN
     Route: 048
     Dates: start: 20140724
  7. AMBIEN [Concomitant]
     Active Substance: ZOLPIDEM TARTRATE
     Indication: INSOMNIA
     Dosage: 10 MG MILLIGRAM(S), QHS
     Route: 048
     Dates: start: 20140625

REACTIONS (1)
  - Bipolar disorder [Recovered/Resolved]

NARRATIVE: CASE EVENT DATE: 20140803
